FAERS Safety Report 14238497 (Version 7)
Quarter: 2018Q3

REPORT INFORMATION
  Report Type: Spontaneous
  Country: CA (occurrence: CA)
  Receive Date: 20171130
  Receipt Date: 20180913
  Transmission Date: 20181010
  Serious: Yes (Other)
  Sender: FDA-Public Use
  Company Number: CA-CELLTRION INC.-2017CA016468

PATIENT

DRUGS (16)
  1. INFLECTRA [Suspect]
     Active Substance: INFLIXIMAB-DYYB
     Dosage: 5 MG/KG, EVERY 0, 2, 6 WEEKS, THEN EVERY 8  WEEKS
     Dates: start: 20180313
  2. PREDNISONE. [Concomitant]
     Active Substance: PREDNISONE
  3. SIMPONI [Concomitant]
     Active Substance: GOLIMUMAB
  4. ASACOL [Concomitant]
     Active Substance: MESALAMINE
  5. ASA [Concomitant]
     Active Substance: ASPIRIN
  6. AZATHIOPRINE. [Concomitant]
     Active Substance: AZATHIOPRINE
  7. ALOPURINOL [Concomitant]
     Active Substance: ALLOPURINOL
  8. INFLECTRA [Suspect]
     Active Substance: INFLIXIMAB-DYYB
     Indication: COLITIS ULCERATIVE
     Dosage: 5 MG/KG, (EVERY 2, 6 WEEKS, THEN EVERY 8 WEEKS)
     Route: 042
     Dates: start: 20170816
  9. INFLECTRA [Suspect]
     Active Substance: INFLIXIMAB-DYYB
     Dosage: 5 MG/KG, EVERY 0, 2, 6 WEEKS, THEN EVERY 8  WEEKS
     Dates: start: 20180510
  10. INFLECTRA [Suspect]
     Active Substance: INFLIXIMAB-DYYB
     Dosage: 5 MG/KG, EVERY 0, 2, 6 WEEKS, THEN EVERY 8  WEEKS
     Dates: start: 20180830
  11. HUMIRA [Concomitant]
     Active Substance: ADALIMUMAB
  12. ALFUZOSIN [Concomitant]
     Active Substance: ALFUZOSIN
  13. INFLECTRA [Suspect]
     Active Substance: INFLIXIMAB-DYYB
     Dosage: 357.5 MG, UNK
     Route: 065
     Dates: start: 20171121
  14. INFLECTRA [Suspect]
     Active Substance: INFLIXIMAB-DYYB
     Dosage: 5 MG/KG, EVERY 0, 2, 6 WEEKS, THEN EVERY 8  WEEKS
     Dates: start: 20180706
  15. PENTASA [Concomitant]
     Active Substance: MESALAMINE
  16. TELMISARTAN. [Concomitant]
     Active Substance: TELMISARTAN

REACTIONS (9)
  - Gout [Unknown]
  - Condition aggravated [Unknown]
  - Sinusitis [Unknown]
  - Influenza [Unknown]
  - Nasopharyngitis [Unknown]
  - Colitis ulcerative [Recovering/Resolving]
  - Incorrect dose administered [Unknown]
  - Condition aggravated [Recovering/Resolving]
  - Oxygen saturation increased [Unknown]

NARRATIVE: CASE EVENT DATE: 201711
